FAERS Safety Report 6426692-3 (Version None)
Quarter: 2009Q4

REPORT INFORMATION
  Report Type: 
  Country: None (occurrence: None)
  Receive Date: 20091030
  Receipt Date: 20091001
  Transmission Date: 20100525
  Serious: Yes (Hospitalization)
  Sender: FDA-Public Use
  Company Number: 2009-0755

PATIENT
  Age: 70 Year
  Sex: Male

DRUGS (1)
  1. SOMATULINA AUTOGEL 120MG (LANREOTIDE) (LANREOTIDE ACETATE) [Suspect]
     Indication: ACROMEGALY
     Dosage: (120 MG)

REACTIONS (3)
  - HEADACHE [None]
  - IIIRD NERVE PARALYSIS [None]
  - PITUITARY HAEMORRHAGE [None]
